FAERS Safety Report 9304575 (Version 1)
Quarter: 2013Q2

REPORT INFORMATION
  Report Type: Spontaneous
  Country: US (occurrence: US)
  Receive Date: 20130523
  Receipt Date: 20130523
  Transmission Date: 20140414
  Serious: Yes (Other)
  Sender: FDA-Public Use
  Company Number: US-ROCHE-788523

PATIENT
  Sex: Female
  Weight: 57.66 kg

DRUGS (3)
  1. ACCUTANE [Suspect]
     Indication: THERMAL BURN
     Route: 065
     Dates: start: 1982, end: 1983
  2. ACCUTANE [Suspect]
     Route: 065
     Dates: start: 1992, end: 1993
  3. ACCUTANE [Suspect]
     Route: 065
     Dates: start: 1998, end: 2005

REACTIONS (6)
  - Crohn^s disease [Unknown]
  - Colitis ulcerative [Unknown]
  - Inflammatory bowel disease [Unknown]
  - Intestinal obstruction [Unknown]
  - Depression [Unknown]
  - Irritable bowel syndrome [Unknown]
